FAERS Safety Report 19488057 (Version 1)
Quarter: 2021Q3

REPORT INFORMATION
  Report Type: Report from Study
  Country: US (occurrence: US)
  Receive Date: 20210702
  Receipt Date: 20210702
  Transmission Date: 20211014
  Serious: Yes (Death, Other)
  Sender: FDA-Public Use
  Company Number: US-ARIAD-2017US008762

PATIENT
  Age: 45 Year
  Sex: Female

DRUGS (8)
  1. PONATINIB [Suspect]
     Active Substance: PONATINIB
     Indication: CHRONIC MYELOID LEUKAEMIA (IN REMISSION)
     Dosage: 15 MILLIGRAM
     Route: 048
     Dates: start: 20160414
  2. BENADRYL ALLERGY [Concomitant]
     Active Substance: DIPHENHYDRAMINE HYDROCHLORIDE
     Dosage: UNK
     Route: 065
  3. COVID?19 VACCINE NOS. [Suspect]
     Active Substance: COVID-19 VACCINE NOS
     Indication: COVID-19
     Dosage: UNK
     Route: 065
  4. ASPIR LOW [Concomitant]
     Active Substance: ASPIRIN
     Dosage: UNK
     Route: 065
  5. PONATINIB [Suspect]
     Active Substance: PONATINIB
     Dosage: 15 MILLIGRAM
     Route: 048
     Dates: start: 20171103
  6. PONATINIB [Suspect]
     Active Substance: PONATINIB
     Dosage: 30 MILLIGRAM, QD
     Route: 065
  7. PONATINIB [Suspect]
     Active Substance: PONATINIB
     Indication: ACUTE MYELOID LEUKAEMIA
     Dosage: 15 MILLIGRAM, QD
     Route: 048
     Dates: start: 20160416
  8. PONATINIB [Suspect]
     Active Substance: PONATINIB
     Dosage: 15 MILLIGRAM, QD
     Route: 048
     Dates: start: 201910

REACTIONS (31)
  - Nail discolouration [Unknown]
  - Stress [Unknown]
  - Swelling [Unknown]
  - Gastrooesophageal reflux disease [Unknown]
  - Pruritus [Unknown]
  - Malaise [Unknown]
  - Eye pruritus [Unknown]
  - Pain in extremity [Unknown]
  - Muscle spasms [Unknown]
  - Arthralgia [Unknown]
  - Death [Fatal]
  - Breast enlargement [Unknown]
  - Hypersomnia [Unknown]
  - Peripheral swelling [Unknown]
  - Fatigue [Unknown]
  - Urticaria [Unknown]
  - Gingival swelling [Unknown]
  - Joint swelling [Unknown]
  - Hot flush [Unknown]
  - Pain [Unknown]
  - Dry eye [Unknown]
  - Weight increased [Unknown]
  - Paraesthesia [Unknown]
  - Hepatic enzyme increased [Unknown]
  - Eyelid rash [Unknown]
  - Rash [Unknown]
  - Back pain [Unknown]
  - Somnolence [Unknown]
  - Decreased appetite [Unknown]
  - Product dose omission issue [Unknown]
  - Off label use [Unknown]

NARRATIVE: CASE EVENT DATE: 20210626
